FAERS Safety Report 9817749 (Version 2)
Quarter: 2014Q1

REPORT INFORMATION
  Report Type: Report from Study
  Country: US (occurrence: US)
  Receive Date: 20140115
  Receipt Date: 20140115
  Transmission Date: 20141002
  Serious: Yes (Disabling)
  Sender: FDA-Public Use
  Company Number: US-ROCHE-1313547

PATIENT
  Age: 48 Year
  Sex: Female
  Weight: 59.02 kg

DRUGS (5)
  1. HERCEPTIN [Suspect]
     Indication: HER-2 POSITIVE BREAST CANCER
     Route: 042
     Dates: start: 201212, end: 201301
  2. OXYCODONE [Concomitant]
     Indication: PAIN
     Dosage: 5/325 MG, AS NEEDED
     Route: 048
     Dates: start: 20131107
  3. OXYCODONE [Concomitant]
     Dosage: 5/325
     Route: 048
     Dates: start: 2010
  4. SYNTHROID [Concomitant]
     Route: 048
  5. LETROZOLE [Concomitant]
     Route: 048
     Dates: start: 20131025

REACTIONS (21)
  - Chest pain [Unknown]
  - Dizziness [Unknown]
  - Pain [Unknown]
  - Breast swelling [Unknown]
  - Lyme disease [Unknown]
  - Fibromyalgia [Unknown]
  - Breast mass [Unknown]
  - Dysarthria [Unknown]
  - Asthenia [Unknown]
  - Loss of consciousness [Unknown]
  - Nausea [Unknown]
  - Insomnia [Unknown]
  - Feeling abnormal [Unknown]
  - Cardiac disorder [Not Recovered/Not Resolved]
  - Weight decreased [Recovered/Resolved]
  - Dizziness [Not Recovered/Not Resolved]
  - Chest pain [Not Recovered/Not Resolved]
  - Loss of consciousness [Not Recovered/Not Resolved]
  - Nausea [Not Recovered/Not Resolved]
  - Asthenia [Not Recovered/Not Resolved]
  - Tooth loss [Unknown]
